FAERS Safety Report 4425293-6 (Version None)
Quarter: 2004Q3

REPORT INFORMATION
  Report Type: 
  Country: None (occurrence: None)
  Receive Date: 20040812
  Receipt Date: 20040812
  Transmission Date: 20050211
  Serious: No
  Sender: FDA-Public Use
  Company Number: None

PATIENT
  Age: 74 Year
  Weight: 111.5849 kg

DRUGS (7)
  1. GATIFLOXACIN [Suspect]
     Indication: SKIN ULCER
     Dosage: 400 MG ORAL
     Route: 048
     Dates: start: 20040407, end: 20040412
  2. ROSIGLITAZONE [Concomitant]
  3. LISINOPRIL [Concomitant]
  4. HYDROCODONE BITARTRATE AND ACETAMINOPHEN [Concomitant]
  5. RANITIDINE [Concomitant]
  6. INSULIN [Concomitant]
  7. FUROSEMIDE [Concomitant]

REACTIONS (1)
  - HYPOGLYCAEMIA [None]
